FAERS Safety Report 5601625-8 (Version None)
Quarter: 2008Q1

REPORT INFORMATION
  Report Type: 
  Country: None (occurrence: None)
  Receive Date: 20080124
  Receipt Date: 20071218
  Transmission Date: 20080703
  Serious: Yes (Hospitalization)
  Sender: FDA-Public Use
  Company Number: US-BRISTOL-MYERS SQUIBB COMPANY-14020010

PATIENT
  Age: 62 Year
  Sex: Female

DRUGS (7)
  1. AZACTAM [Suspect]
     Dosage: RECEIVED 30 MINUTES INFUSION.
     Route: 042
     Dates: start: 20071201, end: 20071215
  2. DILANTIN [Concomitant]
     Dosage: 100MG CAPS TAKE 2CAPS QD ALTERNATING WITH 3CAPS IE 200MG 1DAY, THEN 300MG THE NEXT THEN 200MG.
  3. FENTANYL TRANSDERMAL SYSTEM [Concomitant]
     Indication: PAIN
     Route: 062
     Dates: start: 20071101
  4. VICODIN [Concomitant]
     Dosage: 500 - 1 TO 2 TABS QID PRN
  5. IBUPROFEN [Concomitant]
     Dosage: 800MG TABS TID PRN
  6. FLEXERIL [Concomitant]
     Dosage: 1 DOSAGE FORM = 1TABS. 1TAB Q8HRS PRN
  7. ATIVAN [Concomitant]
     Dosage: 0.5MG TID PRN

REACTIONS (2)
  - GRAND MAL CONVULSION [None]
  - MENTAL IMPAIRMENT [None]
